FAERS Safety Report 5141586-1 (Version None)
Quarter: 2006Q4

REPORT INFORMATION
  Report Type: 
  Country: None (occurrence: None)
  Receive Date: 20061026
  Receipt Date: 20061014
  Transmission Date: 20070319
  Serious: Yes (Other)
  Sender: FDA-Public Use
  Company Number: 2006115469

PATIENT
  Age: 70 Year
  Sex: Female
  Weight: 63.5036 kg

DRUGS (8)
  1. LYRICA [Suspect]
     Indication: NEURALGIA
     Dosage: 150 MG (75 MG, 2 IN 1 D)
     Dates: start: 20060824
  2. MORPHINE [Suspect]
  3. ESTROGENIC SUBSTANCE [Concomitant]
  4. PREMARIN [Concomitant]
  5. ZIAC [Concomitant]
  6. PERCOCET [Concomitant]
  7. SYNTHROID [Concomitant]
  8. PROGESTERONE [Concomitant]

REACTIONS (18)
  - ABASIA [None]
  - ABNORMAL BEHAVIOUR [None]
  - CEREBROVASCULAR ACCIDENT [None]
  - DRUG INEFFECTIVE [None]
  - DRY EYE [None]
  - DYSARTHRIA [None]
  - EYE IRRITATION [None]
  - FALL [None]
  - FEAR [None]
  - FEELING DRUNK [None]
  - FEELING OF DESPAIR [None]
  - GAIT DISTURBANCE [None]
  - HALLUCINATION, VISUAL [None]
  - HYPERSEXUALITY [None]
  - OBSESSIVE THOUGHTS [None]
  - PHOTOPSIA [None]
  - THINKING ABNORMAL [None]
  - VITREOUS FLOATERS [None]
